FAERS Safety Report 18704637 (Version 1)
Quarter: 2021Q1

REPORT INFORMATION
  Report Type: Other
  Country: CA (occurrence: CA)
  Receive Date: 20210106
  Receipt Date: 20210106
  Transmission Date: 20210419
  Serious: Yes (Other)
  Sender: FDA-Public Use
  Company Number: CA-CELLTRION INC.-2021CA000016

PATIENT

DRUGS (9)
  1. CITALOPRAM [Concomitant]
     Active Substance: CITALOPRAM HYDROBROMIDE
  2. TAMSULOSIN [Concomitant]
     Active Substance: TAMSULOSIN
  3. LIPITOR [Concomitant]
     Active Substance: ATORVASTATIN CALCIUM
  4. METHYLPREDNISOLONE SODIUM SUCCINATE. [Concomitant]
     Active Substance: METHYLPREDNISOLONE SODIUM SUCCINATE
  5. NIFEDIPINE. [Concomitant]
     Active Substance: NIFEDIPINE
  6. METHOTREXATE. [Concomitant]
     Active Substance: METHOTREXATE
  7. RITUXIMAB (UNKNOWN) [Suspect]
     Active Substance: RITUXIMAB
     Indication: RHEUMATOID ARTHRITIS
     Dosage: 1000 MG, 1 EVERY 1 DAY
     Route: 042
  8. TYLENOL [Concomitant]
     Active Substance: ACETAMINOPHEN
  9. BENADRYL [Concomitant]
     Active Substance: DIPHENHYDRAMINE HYDROCHLORIDE

REACTIONS (5)
  - Pollakiuria [Not Recovered/Not Resolved]
  - Off label use [Unknown]
  - Prostatitis [Not Recovered/Not Resolved]
  - Calculus urethral [Not Recovered/Not Resolved]
  - Abdominal pain [Not Recovered/Not Resolved]
